FAERS Safety Report 9353346 (Version 6)
Quarter: 2014Q3

REPORT INFORMATION
  Report Type: Report from Study
  Country: US (occurrence: US)
  Receive Date: 20130618
  Receipt Date: 20140731
  Transmission Date: 20150326
  Serious: No
  Sender: FDA-Public Use
  Company Number: US-ALEXION-A201301360

PATIENT

DRUGS (3)
  1. XARELTO [Concomitant]
     Active Substance: RIVAROXABAN
     Indication: ANTICOAGULANT THERAPY
     Dosage: UNK, QD
     Route: 065
     Dates: start: 20130401, end: 20140602
  2. SOLIRIS [Suspect]
     Active Substance: ECULIZUMAB
     Indication: PAROXYSMAL NOCTURNAL HAEMOGLOBINURIA
     Dosage: 900 MG, Q2W
     Route: 042
     Dates: start: 20130514
  3. BACTRIM [Concomitant]
     Active Substance: SULFAMETHOXAZOLE\TRIMETHOPRIM
     Indication: PROPHYLAXIS
     Dosage: UNK
     Route: 048

REACTIONS (9)
  - Asthenia [Recovered/Resolved]
  - Inappropriate schedule of drug administration [Recovered/Resolved]
  - Muscular weakness [Unknown]
  - Laceration [Recovered/Resolved]
  - Headache [Recovered/Resolved]
  - Tooth infection [Recovered/Resolved]
  - Chills [Unknown]
  - Wrong technique in drug usage process [Recovered/Resolved]
  - Rash pruritic [Not Recovered/Not Resolved]

NARRATIVE: CASE EVENT DATE: 20131202
